FAERS Safety Report 14904235 (Version 2)
Quarter: 2018Q3

REPORT INFORMATION
  Report Type: Spontaneous
  Country: US (occurrence: US)
  Receive Date: 20180516
  Receipt Date: 20180706
  Transmission Date: 20181010
  Serious: Yes (Hospitalization, Other)
  Sender: FDA-Public Use
  Company Number: US-SA-2018SA138271

PATIENT
  Sex: Female

DRUGS (1)
  1. TOUJEO [Suspect]
     Active Substance: INSULIN GLARGINE
     Indication: TYPE 2 DIABETES MELLITUS
     Dosage: 35 DF,QD
     Route: 051
     Dates: start: 2015

REACTIONS (4)
  - Cerebrovascular accident [Unknown]
  - Blood glucose increased [Unknown]
  - Thrombosis [Unknown]
  - Neoplasm malignant [Unknown]
